FAERS Safety Report 8331290-0 (Version None)
Quarter: 2012Q2

REPORT INFORMATION
  Report Type: 
  Country: None (occurrence: None)
  Receive Date: 20120502
  Receipt Date: 20120416
  Transmission Date: 20120825
  Serious: No
  Sender: FDA-Public Use
  Company Number: US-AMGEN-USASP2012023836

PATIENT
  Age: 63 Year
  Sex: Male

DRUGS (2)
  1. ENBREL [Suspect]
     Indication: PSORIASIS
     Dosage: 50 MG, 2 TIMES/WK
     Dates: start: 20111018
  2. CYMBALTA [Concomitant]
     Dosage: UNK

REACTIONS (11)
  - OROPHARYNGEAL PAIN [None]
  - HYPERTENSION [None]
  - MUSCULOSKELETAL PAIN [None]
  - SNEEZING [None]
  - ANXIETY [None]
  - CHEST PAIN [None]
  - EAR PAIN [None]
  - NAUSEA [None]
  - APHONIA [None]
  - METATARSALGIA [None]
  - BACK PAIN [None]
